FAERS Safety Report 15645107 (Version 1)
Quarter: 2018Q4

REPORT INFORMATION
  Report Type: Spontaneous
  Country: KR (occurrence: KR)
  Receive Date: 20181121
  Receipt Date: 20181121
  Transmission Date: 20190205
  Serious: Yes (Death, Other)
  Sender: FDA-Public Use
  Company Number: KR-BAYER-2018-212034

PATIENT
  Age: 60 Year
  Sex: Female

DRUGS (2)
  1. NEXAVAR [Suspect]
     Active Substance: SORAFENIB
     Indication: TUMOUR THROMBOSIS
     Dosage: 400 MG, QD (DOSE REDUCED FROM THE 26TH TO THE 28TH HOSPITAL DAY)
  2. NEXAVAR [Suspect]
     Active Substance: SORAFENIB
     Indication: HEPATOCELLULAR CARCINOMA
     Dosage: 400 MG, BID (BEGINNING ON THE TWENTY-SECOND DAY OF HOSPITAL ADMISSION)

REACTIONS (6)
  - Tumour thrombosis [None]
  - Hepatic failure [Fatal]
  - Dyspnoea [None]
  - Drug ineffective [None]
  - Hepatic enzyme increased [Fatal]
  - Hepatocellular carcinoma [None]
